FAERS Safety Report 5631732-5 (Version None)
Quarter: 2008Q1

REPORT INFORMATION
  Report Type: 
  Country: None (occurrence: None)
  Receive Date: 20080213
  Receipt Date: 20080128
  Transmission Date: 20080703
  Serious: Yes (Hospitalization)
  Sender: FDA-Public Use
  Company Number: 2008JP000552

PATIENT
  Age: 23 Year
  Sex: Female

DRUGS (2)
  1. PROGRAF [Suspect]
     Indication: LIVER TRANSPLANT
     Dosage: 1 MG, /D, ORAL
     Route: 048
  2. METHYLPREDNISOLONE [Concomitant]

REACTIONS (2)
  - ABORTION THREATENED [None]
  - DRUG EXPOSURE DURING PREGNANCY [None]
